FAERS Safety Report 11796432 (Version 1)
Quarter: 2015Q4

REPORT INFORMATION
  Report Type: Other
  Country: GB (occurrence: GB)
  Receive Date: 20151203
  Receipt Date: 20151203
  Transmission Date: 20160305
  Serious: Yes (Hospitalization, Other)
  Sender: FDA-Public Use
  Company Number: GB-MYLANLABS-2015M1041188

PATIENT

DRUGS (20)
  1. ATORVASTATIN [Concomitant]
     Active Substance: ATORVASTATIN
     Dosage: UNK
  2. LISINOPRIL. [Concomitant]
     Active Substance: LISINOPRIL
     Dosage: UNK
  3. ENOXAPARIN [Concomitant]
     Active Substance: ENOXAPARIN
     Dosage: UNK
  4. PARACETAMOL [Concomitant]
     Active Substance: ACETAMINOPHEN
     Dosage: UNK
  5. AZATHIOPRINE. [Concomitant]
     Active Substance: AZATHIOPRINE
     Dosage: UNK
  6. CLOPIDOGREL [Concomitant]
     Active Substance: CLOPIDOGREL BISULFATE
     Dosage: UNK
  7. CODEINE PHOSPHATE [Concomitant]
     Active Substance: CODEINE PHOSPHATE
     Dosage: UNK
  8. DOCUSATE [Concomitant]
     Active Substance: DOCUSATE
     Dosage: UNK
  9. METFORMIN [Concomitant]
     Active Substance: METFORMIN HYDROCHLORIDE
     Dosage: UNK
  10. SPIRONOLACTONE. [Concomitant]
     Active Substance: SPIRONOLACTONE
  11. FLUCLOXACILLIN [Concomitant]
     Active Substance: FLUCLOXACILLIN
     Dosage: UNK
  12. LACTULOSE. [Concomitant]
     Active Substance: LACTULOSE
     Dosage: UNK
  13. LANSOPRAZOLE. [Concomitant]
     Active Substance: LANSOPRAZOLE
     Dosage: UNK
  14. SENNA                              /00142201/ [Concomitant]
     Active Substance: SENNA LEAF
     Dosage: UNK
  15. RIFAMPICIN [Suspect]
     Active Substance: RIFAMPIN
     Indication: ACUTE ENDOCARDITIS
     Dosage: 600 MG, BID
     Route: 048
     Dates: start: 20150928, end: 20151108
  16. HUMALOG [Concomitant]
     Active Substance: INSULIN LISPRO
     Dosage: UNK
  17. HYDROXOCOBALAMIN [Concomitant]
     Active Substance: HYDROXOCOBALAMIN
     Dosage: UNK
  18. LANTUS [Concomitant]
     Active Substance: INSULIN GLARGINE
     Dosage: UNK
  19. CYCLIZINE [Concomitant]
     Active Substance: CYCLIZINE
     Dosage: UNK
  20. GANFORT [Concomitant]
     Active Substance: BIMATOPROST\TIMOLOL

REACTIONS (2)
  - Renal tubular acidosis [Recovering/Resolving]
  - Fanconi syndrome [Recovering/Resolving]

NARRATIVE: CASE EVENT DATE: 20151106
